FAERS Safety Report 16969570 (Version 1)
Quarter: 2019Q4

REPORT INFORMATION
  Report Type: Spontaneous
  Country: FR (occurrence: FR)
  Receive Date: 20191029
  Receipt Date: 20191029
  Transmission Date: 20200122
  Serious: Yes (Other)
  Sender: FDA-Public Use
  Company Number: FR-TEVA-2019-FR-1130068

PATIENT
  Age: 94 Year
  Sex: Female
  Weight: 33 kg

DRUGS (6)
  1. CACIT D3 [Suspect]
     Active Substance: CALCIUM\CHOLECALCIFEROL
     Indication: OSTEOPOROSIS
     Dosage: UNK UNK, UNKNOWN
     Route: 048
     Dates: start: 200501
  2. ACTONEL [Suspect]
     Active Substance: RISEDRONATE SODIUM
     Indication: OSTEOPOROSIS
     Dosage: 35 MG, 1 /WEEK
     Route: 048
     Dates: start: 200406
  3. CORVASAL [Concomitant]
     Indication: ANGINA UNSTABLE
     Dosage: UNK UNK, UNKNOWN
     Route: 048
     Dates: start: 1996
  4. MOTILIUM ^JANSSEN^ [Concomitant]
     Indication: GASTROOESOPHAGEAL REFLUX DISEASE
     Dosage: UNK UNK, UNKNOWN
     Route: 048
     Dates: start: 1996
  5. MOPRAL [Concomitant]
     Active Substance: OMEPRAZOLE
     Indication: GASTROOESOPHAGEAL REFLUX DISEASE
     Dosage: UNK UNK, UNKNOWN
     Route: 048
     Dates: start: 1996
  6. SERECOR [HYDROQUINIDINE HYDROCHLORIDE] [Concomitant]
     Active Substance: HYDROQUINIDINE HYDROCHLORIDE
     Indication: ARRHYTHMIA
     Dosage: UNK UNK, UNKNOWN
     Route: 048
     Dates: start: 1996

REACTIONS (2)
  - Breast mass [Not Recovered/Not Resolved]
  - Breast cancer [Not Recovered/Not Resolved]

NARRATIVE: CASE EVENT DATE: 20050616
